FAERS Safety Report 7258532-7 (Version None)
Quarter: 2011Q1

REPORT INFORMATION
  Report Type: 
  Country: None (occurrence: None)
  Receive Date: 20110129
  Receipt Date: 20100504
  Transmission Date: 20110831
  Serious: No
  Sender: FDA-Public Use
  Company Number: US-ABBOTT-10P-163-0642853-00

PATIENT
  Age: 47 Year
  Sex: Male

DRUGS (4)
  1. NARCOTICS [Concomitant]
     Indication: PAIN
  2. HUMIRA [Suspect]
     Indication: RHEUMATOID ARTHRITIS
     Dates: start: 20090801, end: 20100502
  3. ANTIDEPRESSANTS [Concomitant]
     Indication: PRODUCT USED FOR UNKNOWN INDICATION
  4. FLOMAX [Concomitant]
     Indication: URINARY TRACT DISORDER

REACTIONS (3)
  - SPUTUM DISCOLOURED [None]
  - OROPHARYNGEAL PAIN [None]
  - EAR PAIN [None]
